FAERS Safety Report 13098320 (Version 2)
Quarter: 2017Q1

REPORT INFORMATION
  Report Type: Spontaneous
  Country: US (occurrence: US)
  Receive Date: 20170109
  Receipt Date: 20170117
  Transmission Date: 20170428
  Serious: No
  Sender: FDA-Public Use
  Company Number: US-PFIZER INC-2017007735

PATIENT
  Age: 80 Year
  Sex: Female

DRUGS (2)
  1. LYRICA [Suspect]
     Active Substance: PREGABALIN
     Dosage: 4 CAPSULES, DAILY
  2. LYRICA [Suspect]
     Active Substance: PREGABALIN
     Dosage: 1 TAB QAM, 2 TABS, QHS

REACTIONS (1)
  - Pain in extremity [Unknown]
